FAERS Safety Report 5694325-X (Version None)
Quarter: 2008Q2

REPORT INFORMATION
  Report Type: 
  Country: None (occurrence: None)
  Receive Date: 20080402
  Receipt Date: 20080317
  Transmission Date: 20081010
  Serious: Yes (Death)
  Sender: FDA-Public Use
  Company Number: 2008000606

PATIENT
  Age: 58 Year
  Sex: Male

DRUGS (3)
  1. ERLOTINIB(ERLOTINIB HCL) (TABLET) (ERLOTINIB HCL) [Suspect]
     Indication: NON-SMALL CELL LUNG CANCER
     Dosage: (150 MG,QD), ORAL
     Route: 048
     Dates: start: 20071211, end: 20071223
  2. CARBOPLATIN [Concomitant]
  3. VINORELBINE TARTRATE [Concomitant]

REACTIONS (1)
  - DEATH [None]
